FAERS Safety Report 6314295-0 (Version None)
Quarter: 2009Q3

REPORT INFORMATION
  Report Type: 
  Country: None (occurrence: None)
  Receive Date: 20090819
  Receipt Date: 20090810
  Transmission Date: 20100115
  Serious: Yes (Hospitalization)
  Sender: FDA-Public Use
  Company Number: US-BIOGENIDEC-2008BI018085

PATIENT
  Age: 36 Year
  Sex: Female
  Weight: 81 kg

DRUGS (1)
  1. TYSABRI [Suspect]
     Indication: MULTIPLE SCLEROSIS
     Route: 042
     Dates: start: 20080417

REACTIONS (15)
  - ANXIETY [None]
  - DEHYDRATION [None]
  - DEPRESSION [None]
  - FATIGUE [None]
  - HEADACHE [None]
  - HEMIPLEGIA [None]
  - HERPES ZOSTER [None]
  - INFECTIOUS MONONUCLEOSIS [None]
  - MICTURITION DISORDER [None]
  - PNEUMONIA [None]
  - RESPIRATORY DISTRESS [None]
  - SPINAL CORD OEDEMA [None]
  - SYNCOPE [None]
  - THIRST DECREASED [None]
  - URINARY TRACT INFECTION [None]
